FAERS Safety Report 4593019-1 (Version None)
Quarter: 2005Q1

REPORT INFORMATION
  Report Type: 
  Country: None (occurrence: None)
  Receive Date: 20050228
  Receipt Date: 20050216
  Transmission Date: 20050727
  Serious: Yes (Disabling)
  Sender: FDA-Public Use
  Company Number: US-ABBOTT-05P-163-0291828-00

PATIENT

DRUGS (1)
  1. HUMIRA [Suspect]
     Indication: CHONDRITIS
     Route: 058

REACTIONS (1)
  - DYSPHAGIA [None]
